APPROVED DRUG PRODUCT: TROKENDI XR
Active Ingredient: TOPIRAMATE
Strength: 25MG
Dosage Form/Route: CAPSULE, EXTENDED RELEASE;ORAL
Application: N201635 | Product #001 | TE Code: AB1
Applicant: SUPERNUS PHARMACEUTICALS INC
Approved: Aug 16, 2013 | RLD: Yes | RS: No | Type: RX

PATENTS:
Patent 8298576 | Expires: Apr 4, 2028
Patent 8298576 | Expires: Apr 4, 2028
Patent 8663683 | Expires: Nov 16, 2027
Patent 8663683 | Expires: Nov 16, 2027
Patent 8992989 | Expires: Nov 16, 2027
Patent 8889191 | Expires: Nov 16, 2027
Patent 9549940 | Expires: Nov 16, 2027
Patent 8298580 | Expires: Nov 16, 2027
Patent 8877248 | Expires: Nov 16, 2027
Patent 8877248 | Expires: Nov 16, 2027
Patent 9555004 | Expires: Nov 16, 2027
Patent 10314790 | Expires: Nov 16, 2027
Patent 9622983 | Expires: Nov 16, 2027
Patent 8992989 | Expires: Nov 16, 2027
Patent 8889191 | Expires: Nov 16, 2027
Patent 9549940 | Expires: Nov 16, 2027
Patent 9622983 | Expires: Nov 16, 2027
Patent 9555004 | Expires: Nov 16, 2027
Patent 10314790 | Expires: Nov 16, 2027
Patent 8298580 | Expires: Nov 16, 2027